FAERS Safety Report 4636884-1 (Version None)
Quarter: 2005Q2

REPORT INFORMATION
  Report Type: 
  Country: None (occurrence: None)
  Receive Date: 20050415
  Receipt Date: 20021014
  Transmission Date: 20051028
  Serious: Yes (Hospitalization, Disabling)
  Sender: FDA-Public Use
  Company Number: AU-MERCK-0210AUS00119

PATIENT
  Age: 70 Year
  Sex: Female

DRUGS (7)
  1. ZOCOR [Suspect]
     Route: 065
  2. ASPIRIN [Concomitant]
     Route: 065
  3. FUROSEMIDE [Concomitant]
     Route: 065
  4. CAPTOPRIL [Concomitant]
     Route: 065
  5. DILTIAZEM HYDROCHLORIDE [Suspect]
     Route: 065
  6. ALLOPURINOL [Concomitant]
     Route: 065
  7. INSULIN [Concomitant]
     Indication: DIABETES MELLITUS
     Route: 065

REACTIONS (11)
  - ASTHENIA [None]
  - BLOOD CREATINE PHOSPHOKINASE INCREASED [None]
  - DRUG INTERACTION [None]
  - HYPOREFLEXIA [None]
  - MYOGLOBINURIA [None]
  - MYOPATHY [None]
  - NEUROPATHY PERIPHERAL [None]
  - RENAL IMPAIRMENT [None]
  - RHABDOMYOLYSIS [None]
  - SENSORY DISTURBANCE [None]
  - URINE ANALYSIS ABNORMAL [None]
